FAERS Safety Report 26203045 (Version 1)
Quarter: 2025Q4

REPORT INFORMATION
  Report Type: Spontaneous
  Country: GB (occurrence: GB)
  Receive Date: 20251226
  Receipt Date: 20251226
  Transmission Date: 20260117
  Serious: Yes (Hospitalization, Other)
  Sender: TORRENT PHARMA INC.
  Company Number: GB-TORRENT-00044068

PATIENT
  Age: 73 Year
  Sex: Male

DRUGS (1)
  1. APIXABAN [Suspect]
     Active Substance: APIXABAN
     Indication: Atrial fibrillation
     Dosage: DOAC
     Route: 048

REACTIONS (6)
  - Fall [Unknown]
  - Craniocerebral injury [Unknown]
  - Subdural haematoma [Unknown]
  - Skull fracture [Unknown]
  - Brain contusion [Unknown]
  - Rib fracture [Unknown]
